FAERS Safety Report 16948144 (Version 1)
Quarter: 2019Q4

REPORT INFORMATION
  Report Type: Spontaneous
  Country: US (occurrence: US)
  Receive Date: 20191022
  Receipt Date: 20191022
  Transmission Date: 20200122
  Serious: No
  Sender: FDA-Public Use
  Company Number: US-ROCHE-2312136

PATIENT
  Age: 8 Year
  Sex: Male

DRUGS (1)
  1. VEMURAFENIB. [Suspect]
     Active Substance: VEMURAFENIB
     Indication: GANGLIOGLIOMA
     Route: 065

REACTIONS (3)
  - Hypoalbuminaemia [Unknown]
  - Pruritus [Unknown]
  - Rash maculo-papular [Unknown]
